FAERS Safety Report 24014964 (Version 1)
Quarter: 2024Q2

REPORT INFORMATION
  Report Type: Spontaneous
  Country: PL (occurrence: PL)
  Receive Date: 20240626
  Receipt Date: 20240626
  Transmission Date: 20240716
  Serious: Yes (Other)
  Sender: FDA-Public Use
  Company Number: PL-GILEAD-2024-0678243

PATIENT
  Age: 46 Year
  Sex: Female

DRUGS (1)
  1. YESCARTA [Suspect]
     Active Substance: AXICABTAGENE CILOLEUCEL
     Indication: B-cell lymphoma
     Route: 042

REACTIONS (8)
  - Brain oedema [Unknown]
  - Klebsiella test positive [Unknown]
  - Circulatory collapse [Unknown]
  - Shock [Unknown]
  - Cardiac arrest [Unknown]
  - Immune effector cell-associated neurotoxicity syndrome [Unknown]
  - Cytokine release syndrome [Unknown]
  - Hypotension [Unknown]

NARRATIVE: CASE EVENT DATE: 20240604
